FAERS Safety Report 25158475 (Version 2)
Quarter: 2025Q2

REPORT INFORMATION
  Report Type: Spontaneous
  Country: PE (occurrence: PE)
  Receive Date: 20250404
  Receipt Date: 20250415
  Transmission Date: 20250717
  Serious: Yes (Other)
  Sender: REGENERON
  Company Number: PE-BAYER-2025A044188

PATIENT
  Age: 72 Year
  Sex: Female

DRUGS (3)
  1. EYLEA [Suspect]
     Active Substance: AFLIBERCEPT
     Indication: Blindness
     Dates: start: 20230505, end: 20230505
  2. EYLEA [Suspect]
     Active Substance: AFLIBERCEPT
     Indication: Macular oedema
     Dates: start: 20230710, end: 20230710
  3. EYLEA [Suspect]
     Active Substance: AFLIBERCEPT
     Dates: start: 20231020, end: 20231020

REACTIONS (1)
  - Macular oedema [Not Recovered/Not Resolved]
